FAERS Safety Report 16556361 (Version 1)
Quarter: 2019Q3

REPORT INFORMATION
  Report Type: Spontaneous
  Country: US (occurrence: US)
  Receive Date: 20190710
  Receipt Date: 20190710
  Transmission Date: 20191004
  Serious: Yes (Death)
  Sender: FDA-Public Use
  Company Number: US-LEXICON PHARMACEUTICALS, INC-19-1606-00723

PATIENT
  Sex: Female

DRUGS (19)
  1. FLINSTONE CHEWABLE EXTRA [Concomitant]
  2. PRILOSEC [Concomitant]
     Active Substance: OMEPRAZOLE MAGNESIUM
  3. ZOFRAN [Concomitant]
     Active Substance: ONDANSETRON HYDROCHLORIDE
  4. NOVOLIN [Concomitant]
     Active Substance: INSULIN HUMAN
  5. CVS VITAMIN E [Concomitant]
  6. GABAPENTIN. [Concomitant]
     Active Substance: GABAPENTIN
  7. SOMATULINE [Concomitant]
     Active Substance: LANREOTIDE ACETATE
  8. TELOTRISTAT ETHYL [Suspect]
     Active Substance: TELOTRISTAT ETHYL
     Indication: NEUROENDOCRINE TUMOUR
     Route: 048
     Dates: start: 20190427
  9. SANDOSTATIN [Concomitant]
     Active Substance: OCTREOTIDE ACETATE
  10. LEVOTHYROXINE SODIUM. [Concomitant]
     Active Substance: LEVOTHYROXINE SODIUM
  11. LOMOTIL [Concomitant]
     Active Substance: ATROPINE SULFATE\DIPHENOXYLATE HYDROCHLORIDE
  12. OXYCODONE [Concomitant]
     Active Substance: OXYCODONE
  13. CREON [Concomitant]
     Active Substance: PANCRELIPASE AMYLASE\PANCRELIPASE LIPASE\PANCRELIPASE PROTEASE
  14. TYLENOL [Concomitant]
     Active Substance: ACETAMINOPHEN
  15. EPIPEN [Concomitant]
     Active Substance: EPINEPHRINE
  16. MS CONTIN [Concomitant]
     Active Substance: MORPHINE SULFATE
  17. ATIVAN [Concomitant]
     Active Substance: LORAZEPAM
  18. SENOKOT [Concomitant]
     Active Substance: SENNOSIDES
  19. PROBIOTIC [Concomitant]
     Active Substance: PROBIOTICS NOS

REACTIONS (1)
  - Death [Fatal]
